FAERS Safety Report 6694128-3 (Version None)
Quarter: 2010Q2

REPORT INFORMATION
  Report Type: 
  Country: None (occurrence: None)
  Receive Date: 20100423
  Receipt Date: 20100412
  Transmission Date: 20101027
  Serious: Yes (Other)
  Sender: FDA-Public Use
  Company Number: US-ROCHE-683284

PATIENT
  Sex: Female
  Weight: 77.1 kg

DRUGS (4)
  1. CAPECITABINE [Suspect]
     Indication: BREAST CANCER
     Route: 048
     Dates: start: 20091027
  2. CAPECITABINE [Interacting]
     Dosage: 2 PILLS TWICE A DAY
     Route: 048
     Dates: start: 20091201
  3. COUMADIN [Interacting]
     Indication: DRUG USE FOR UNKNOWN INDICATION
     Dosage: DOSE REDUCED
     Route: 048
  4. COUMADIN [Interacting]
     Dosage: DOSE REDUCED
     Route: 048

REACTIONS (4)
  - BLISTER [None]
  - DRUG INTERACTION [None]
  - POST PROCEDURAL HAEMORRHAGE [None]
  - TONGUE HAEMORRHAGE [None]
